FAERS Safety Report 17477229 (Version 2)
Quarter: 2021Q2

REPORT INFORMATION
  Report Type: Spontaneous
  Country: US (occurrence: US)
  Receive Date: 20200229
  Receipt Date: 20210517
  Transmission Date: 20210716
  Serious: Yes (Disabling)
  Sender: FDA-Public Use
  Company Number: US-TEVA-2020-US-1192758

PATIENT
  Age: 62 Year
  Sex: Female

DRUGS (1)
  1. DOCETAXEL?HOSPIRA [Suspect]
     Active Substance: DOCETAXEL
     Indication: BREAST CANCER FEMALE
     Dosage: DOSE 110 MG, NUMBER OF CYCLES?06, EVERY THREE WEEKS
     Route: 065
     Dates: start: 20150714, end: 20151103

REACTIONS (1)
  - Alopecia [Not Recovered/Not Resolved]

NARRATIVE: CASE EVENT DATE: 201605
